FAERS Safety Report 22263835 (Version 2)
Quarter: 2023Q2

REPORT INFORMATION
  Report Type: Spontaneous
  Country: US (occurrence: US)
  Receive Date: 20230428
  Receipt Date: 20230512
  Transmission Date: 20230722
  Serious: Yes (Life-Threatening, Hospitalization)
  Sender: FDA-Public Use
  Company Number: US-TEVA-2023-US-2879245

PATIENT
  Age: 6 Year

DRUGS (5)
  1. LACTULOSE [Suspect]
     Active Substance: LACTULOSE
     Indication: Hepatic encephalopathy
     Route: 065
  2. RIFAXIMIN [Suspect]
     Active Substance: RIFAXIMIN
     Indication: Hepatic encephalopathy
     Route: 065
  3. PHYTONADIONE [Suspect]
     Active Substance: PHYTONADIONE
     Indication: Hepatic encephalopathy
     Route: 042
  4. CIDOFOVIR [Concomitant]
     Active Substance: CIDOFOVIR
     Indication: Adenovirus infection
     Dosage: 5 MG/KG EVERY 1 WEEK
     Route: 065
  5. Immunoglobulin [Concomitant]
     Indication: Inflammation
     Dosage: IV IMMUNE-GLOBULIN 2 G/KG
     Route: 042

REACTIONS (1)
  - Drug ineffective [Unknown]
